FAERS Safety Report 24206001 (Version 2)
Quarter: 2024Q3

REPORT INFORMATION
  Report Type: Spontaneous
  Country: JP (occurrence: JP)
  Receive Date: 20240813
  Receipt Date: 20240906
  Transmission Date: 20241016
  Serious: Yes (Hospitalization, Other)
  Sender: TAKEDA
  Company Number: JP-TAKEDA-2024TJP011552

PATIENT
  Age: 82 Year
  Sex: Female
  Weight: 45 kg

DRUGS (5)
  1. ENTYVIO [Suspect]
     Active Substance: VEDOLIZUMAB
     Indication: Colitis ulcerative
     Dosage: 300 MILLIGRAM, Q8WEEKS
     Route: 041
     Dates: start: 20240423
  2. ENTYVIO [Suspect]
     Active Substance: VEDOLIZUMAB
     Indication: Colitis ulcerative
     Dosage: UNK, Q2WEEKS
     Route: 065
     Dates: start: 20240813
  3. ENTYVIO [Suspect]
     Active Substance: VEDOLIZUMAB
     Indication: Colitis ulcerative
     Dosage: UNK, Q2WEEKS
     Route: 065
     Dates: start: 20240813
  4. PREDNISOLONE [Suspect]
     Active Substance: PREDNISOLONE
     Indication: Colitis ulcerative
     Dosage: 2.5 MILLIGRAM, QD
     Route: 048
  5. LIALDA [Concomitant]
     Active Substance: MESALAMINE
     Dosage: 1200 MILLIGRAM, QD
     Route: 048

REACTIONS (2)
  - Spinal compression fracture [Recovered/Resolved with Sequelae]
  - Sacral pain [Unknown]

NARRATIVE: CASE EVENT DATE: 20240624
